FAERS Safety Report 21611058 (Version 1)
Quarter: 2022Q4

REPORT INFORMATION
  Report Type: Spontaneous
  Country: CO (occurrence: CO)
  Receive Date: 20221117
  Receipt Date: 20221117
  Transmission Date: 20230113
  Serious: Yes (Hospitalization, Other)
  Sender: FDA-Public Use
  Company Number: CO-VERTEX PHARMACEUTICALS-2022-016800

PATIENT
  Age: 23 Year
  Sex: Male
  Weight: 42 kg

DRUGS (7)
  1. TRIKAFTA [Suspect]
     Active Substance: ELEXACAFTOR\IVACAFTOR\TEZACAFTOR
     Indication: Cystic fibrosis
     Dosage: 24 HOURS
     Route: 048
     Dates: start: 20220811, end: 20221103
  2. PANCREATIN [Concomitant]
     Active Substance: PANCRELIPASE
     Indication: Pancreatic failure
     Dosage: 25500 UI, 24 HOURS
     Route: 048
  3. PANCREATIN [Concomitant]
     Active Substance: PANCRELIPASE
     Dosage: 37500 UI, 8 HOURS
     Route: 048
  4. FLUTICASONE [Concomitant]
     Active Substance: FLUTICASONE
     Indication: Cystic fibrosis
     Dosage: 50 + 250 MCG, 12 HOURS
  5. URSODIOL [Concomitant]
     Active Substance: URSODIOL
     Indication: Cystic fibrosis
     Dosage: 300 MG, 12 HOURS
     Route: 048
  6. DORNASE ALFA [Concomitant]
     Active Substance: DORNASE ALFA
     Indication: Cystic fibrosis
     Dosage: 2.5 MG, 24 HOURS
     Route: 048
  7. ALBUTEROL [Concomitant]
     Active Substance: ALBUTEROL
     Indication: Cystic fibrosis
     Dosage: 100 MICROGRAM

REACTIONS (2)
  - Postoperative wound infection [Recovering/Resolving]
  - Ileostomy [Recovered/Resolved]

NARRATIVE: CASE EVENT DATE: 20220817
